FAERS Safety Report 5241714-3 (Version None)
Quarter: 2007Q1

REPORT INFORMATION
  Report Type: 
  Country: None (occurrence: None)
  Receive Date: 20070220
  Receipt Date: 20070208
  Transmission Date: 20070707
  Serious: Yes (Other)
  Sender: FDA-Public Use
  Company Number: US-ELI_LILLY_AND_COMPANY-US200702001524

PATIENT
  Sex: Female

DRUGS (1)
  1. FORTEO [Suspect]
     Dates: start: 20060901

REACTIONS (4)
  - FALL [None]
  - GASTRIC ULCER HAEMORRHAGE [None]
  - HIP FRACTURE [None]
  - PNEUMONIA [None]
